FAERS Safety Report 9413699 (Version 1)
Quarter: 2013Q3

REPORT INFORMATION
  Report Type: Spontaneous
  Country: None (occurrence: None)
  Receive Date: 20130708
  Receipt Date: 20130708
  Transmission Date: 20140515
  Serious: Yes (Other)
  Sender: FDA-Public Use
  Company Number: 08-AUR-06565

PATIENT
  Age: 44 Year
  Sex: Male

DRUGS (6)
  1. PENICILLIN V POTASSIUM [Suspect]
     Indication: INFECTION
     Dosage: 600 MG 4 IN 1 D
     Route: 048
  2. PENICILLIN G [Suspect]
     Indication: INFECTION
     Dosage: 18 MU (3 MU, 1 IN 4 HOURS)
     Route: 042
  3. HUMULIN R (INSULIN HUMAN) [Concomitant]
  4. HUMULIN N [Concomitant]
  5. GENTAMICIN (GENTAMICIN) [Concomitant]
  6. CLINDAMICIN (CLINDAMICIN PHOSPHATE) [Concomitant]

REACTIONS (3)
  - Post procedural haemorrhage [None]
  - Arterial haemorrhage [None]
  - Hyperkalaemia [None]
